FAERS Safety Report 9386205 (Version 3)
Quarter: 2018Q1

REPORT INFORMATION
  Report Type: Report from Study
  Country: GB (occurrence: GB)
  Receive Date: 20130708
  Receipt Date: 20180305
  Transmission Date: 20180509
  Serious: Yes (Death)
  Sender: FDA-Public Use
  Company Number: GB-ROCHE-1242862

PATIENT
  Age: 77 Year
  Sex: Male

DRUGS (2)
  1. AZATHIOPRINE. [Concomitant]
     Active Substance: AZATHIOPRINE
     Route: 065
     Dates: start: 20110510
  2. RITUXIMAB. [Suspect]
     Active Substance: RITUXIMAB
     Indication: RHEUMATOID ARTHRITIS
     Route: 065
     Dates: start: 20110804, end: 20110815

REACTIONS (3)
  - Chronic kidney disease [Fatal]
  - Renal cancer metastatic [Fatal]
  - Pneumonia [Fatal]

NARRATIVE: CASE EVENT DATE: 20130404
